FAERS Safety Report 11228027 (Version 2)
Quarter: 2015Q3

REPORT INFORMATION
  Report Type: Spontaneous
  Country: DE (occurrence: None)
  Receive Date: 20150626
  Receipt Date: 20150707
  Transmission Date: 20151125
  Serious: Yes (Death, Life-Threatening, Hospitalization, Other)
  Sender: FDA-Public Use
  Company Number: DE2015GSK088917

PATIENT
  Age: 65 Year
  Sex: Male
  Weight: 58 kg

DRUGS (6)
  1. TRUVADA [Concomitant]
     Active Substance: EMTRICITABINE\TENOFOVIR DISOPROXIL FUMARATE
  2. PANTOPRAZOLE [Concomitant]
     Active Substance: PANTOPRAZOLE SODIUM
  3. ASS (ACETYLSALICYLIC ACID) [Concomitant]
  4. TIVICAY [Suspect]
     Active Substance: DOLUTEGRAVIR SODIUM
     Indication: HIV INFECTION
     Dates: start: 20140919, end: 20150414
  5. SIMVASTATIN. [Concomitant]
     Active Substance: SIMVASTATIN
  6. METOPROLOL [Concomitant]
     Active Substance: METOPROLOL

REACTIONS (14)
  - Weight decreased [None]
  - Coagulopathy [None]
  - Upper gastrointestinal haemorrhage [None]
  - Chromaturia [None]
  - Sepsis [None]
  - Cholangitis [None]
  - Hepatitis [None]
  - Drug-induced liver injury [None]
  - Fatigue [None]
  - Hepatic enzyme increased [None]
  - Metabolic acidosis [None]
  - Hypoxia [None]
  - Faeces pale [None]
  - General physical health deterioration [None]

NARRATIVE: CASE EVENT DATE: 20150324
